FAERS Safety Report 9728788 (Version 1)
Quarter: 2013Q4

REPORT INFORMATION
  Report Type: Spontaneous
  Country: US (occurrence: US)
  Receive Date: 20131204
  Receipt Date: 20131204
  Transmission Date: 20140711
  Serious: No
  Sender: FDA-Public Use
  Company Number: US-BIOGENIDEC-2013BI064089

PATIENT
  Age: 34 Year
  Sex: Female

DRUGS (7)
  1. TECFIDERA [Suspect]
     Indication: MULTIPLE SCLEROSIS
     Route: 048
     Dates: start: 20130622, end: 20130628
  2. TECFIDERA [Suspect]
     Indication: MULTIPLE SCLEROSIS
     Route: 048
     Dates: start: 20130629, end: 20130716
  3. TECFIDERA [Suspect]
     Indication: MULTIPLE SCLEROSIS
     Route: 048
     Dates: start: 20130716, end: 20130725
  4. TECFIDERA [Suspect]
     Indication: MULTIPLE SCLEROSIS
     Route: 048
     Dates: start: 20130726
  5. TECFIDERA [Suspect]
     Indication: MULTIPLE SCLEROSIS
     Route: 048
     Dates: end: 20131104
  6. SYNTHROID [Concomitant]
  7. VITAMIN D [Concomitant]

REACTIONS (14)
  - Flatulence [Recovered/Resolved]
  - Headache [Unknown]
  - Constipation [Unknown]
  - Abdominal distension [Recovered/Resolved]
  - Intentional drug misuse [Recovered/Resolved]
  - Prescribed underdose [Unknown]
  - Paraesthesia [Unknown]
  - Abdominal pain upper [Recovered/Resolved]
  - Burning sensation [Unknown]
  - Nausea [Recovered/Resolved]
  - Dyspepsia [Unknown]
  - Flushing [Not Recovered/Not Resolved]
  - Pruritus [Unknown]
  - Lymphocyte count decreased [Unknown]
